FAERS Safety Report 5842333-8 (Version None)
Quarter: 2008Q3

REPORT INFORMATION
  Report Type: 
  Country: None (occurrence: None)
  Receive Date: 20080812
  Receipt Date: 20080804
  Transmission Date: 20090109
  Serious: Yes (Death)
  Sender: FDA-Public Use
  Company Number: JP-GENENTECH-265813

PATIENT
  Age: 45 Year
  Sex: Male

DRUGS (10)
  1. RITUXAN [Suspect]
     Indication: NON-HODGKIN'S LYMPHOMA
     Dosage: UNK
     Dates: start: 20040101
  2. CYCLOPHOSPHAMIDE [Concomitant]
     Indication: NON-HODGKIN'S LYMPHOMA
  3. DOXORUBICIN HCL [Concomitant]
     Indication: NON-HODGKIN'S LYMPHOMA
  4. PREDNISOLONE [Concomitant]
     Indication: NON-HODGKIN'S LYMPHOMA
  5. CYTARABINE [Concomitant]
     Indication: NON-HODGKIN'S LYMPHOMA
  6. BLEOMYCIN SULFATE [Concomitant]
     Indication: NON-HODGKIN'S LYMPHOMA
  7. METHOTREXATE [Concomitant]
     Indication: NON-HODGKIN'S LYMPHOMA
  8. CARBOPLATIN [Concomitant]
     Indication: NON-HODGKIN'S LYMPHOMA
  9. RANIMUSTINE [Concomitant]
     Indication: NON-HODGKIN'S LYMPHOMA
  10. ETOPOSIDE [Concomitant]
     Indication: NON-HODGKIN'S LYMPHOMA

REACTIONS (3)
  - AMYLOIDOSIS [None]
  - CENTRAL NERVOUS SYSTEM LESION [None]
  - LARGE INTESTINAL HAEMORRHAGE [None]
